FAERS Safety Report 4811606-X (Version None)
Quarter: 2005Q4

REPORT INFORMATION
  Report Type: 
  Country: None (occurrence: None)
  Receive Date: 20051027
  Receipt Date: 20030318
  Transmission Date: 20060501
  Serious: Yes (Death)
  Sender: FDA-Public Use
  Company Number: US-MERCK-0303USA01883

PATIENT
  Age: 71 Year
  Sex: Male
  Weight: 84 kg

DRUGS (1)
  1. VIOXX [Suspect]
     Route: 048
     Dates: start: 20010301, end: 20010401

REACTIONS (8)
  - ACUTE MYOCARDIAL INFARCTION [None]
  - ARTERIOSCLEROSIS [None]
  - CONJUNCTIVAL HYPERAEMIA [None]
  - CONTUSION [None]
  - CORONARY ARTERY DISEASE [None]
  - FACE OEDEMA [None]
  - PULMONARY OEDEMA [None]
  - VASCULAR OCCLUSION [None]
